FAERS Safety Report 22058061 (Version 1)
Quarter: 2023Q1

REPORT INFORMATION
  Report Type: Report from Study
  Country: GB (occurrence: GB)
  Receive Date: 20230303
  Receipt Date: 20230303
  Transmission Date: 20230417
  Serious: Yes (Other)
  Sender: FDA-Public Use
  Company Number: GB-ROCHE-2211162

PATIENT
  Sex: Female

DRUGS (16)
  1. STELARA [Suspect]
     Active Substance: USTEKINUMAB
     Indication: Rheumatoid arthritis
     Route: 058
     Dates: start: 2019
  2. STELARA [Suspect]
     Active Substance: USTEKINUMAB
  3. TOCILIZUMAB [Suspect]
     Active Substance: TOCILIZUMAB
     Indication: Rheumatoid arthritis
     Route: 058
     Dates: start: 20171030
  4. TOCILIZUMAB [Suspect]
     Active Substance: TOCILIZUMAB
     Route: 058
     Dates: start: 20170928
  5. HYDROXYCHLOROQUINE [Concomitant]
     Active Substance: HYDROXYCHLOROQUINE
  6. SULFASALAZINE [Concomitant]
     Active Substance: SULFASALAZINE
  7. CHLORPHENIRAMINE MALEATE [Concomitant]
     Active Substance: CHLORPHENIRAMINE MALEATE
  8. FERROUS SULFATE [Concomitant]
     Active Substance: FERROUS SULFATE
  9. BENDROFLUMETHIAZIDE [Concomitant]
     Active Substance: BENDROFLUMETHIAZIDE
  10. FOLIC ACID [Concomitant]
     Active Substance: FOLIC ACID
  11. ACEROLA [Concomitant]
     Active Substance: ACEROLA
  12. ATENOLOL [Concomitant]
     Active Substance: ATENOLOL
  13. ATORVASTATIN [Concomitant]
     Active Substance: ATORVASTATIN
  14. METHOTREXATE [Concomitant]
     Active Substance: METHOTREXATE
  15. LERCANIDIPINE [Concomitant]
     Active Substance: LERCANIDIPINE
  16. OMEPRAZOLE [Concomitant]
     Active Substance: OMEPRAZOLE

REACTIONS (9)
  - Cellulitis [Unknown]
  - Cellulitis [Unknown]
  - Immunodeficiency [Unknown]
  - Infection [Unknown]
  - Skin infection [Unknown]
  - Localised infection [Unknown]
  - Peripheral swelling [Unknown]
  - Off label use [Unknown]
  - Product use in unapproved indication [Unknown]
